FAERS Safety Report 25379665 (Version 1)
Quarter: 2025Q2

REPORT INFORMATION
  Report Type: Spontaneous
  Country: US (occurrence: None)
  Receive Date: 20250529
  Receipt Date: 20250529
  Transmission Date: 20250716
  Serious: Yes (Disabling)
  Sender: FDA-CTU
  Company Number: None

PATIENT
  Age: 30 Year
  Sex: Female
  Weight: 48.15 kg

DRUGS (6)
  1. ZOLOFT [Suspect]
     Active Substance: SERTRALINE HYDROCHLORIDE
     Indication: Anxiety
     Dates: start: 19941101, end: 19961101
  2. ZOLOFT [Suspect]
     Active Substance: SERTRALINE HYDROCHLORIDE
     Indication: Depression
  3. PAXIL [Suspect]
     Active Substance: PAROXETINE HYDROCHLORIDE
  4. Vit D2+K [Concomitant]
  5. Collagen peptides [Concomitant]
  6. MCT powder [Concomitant]

REACTIONS (4)
  - Withdrawal syndrome [None]
  - Sexual dysfunction [None]
  - Postpartum disorder [None]
  - Serotonin syndrome [None]

NARRATIVE: CASE EVENT DATE: 19980510
